FAERS Safety Report 7772429-5 (Version None)
Quarter: 2011Q3

REPORT INFORMATION
  Report Type: 
  Country: None (occurrence: None)
  Receive Date: 20110922
  Receipt Date: 20110909
  Transmission Date: 20111222
  Serious: Yes (Other)
  Sender: FDA-Public Use
  Company Number: PHHY2011GB80245

PATIENT
  Sex: Female

DRUGS (13)
  1. AMITRIPTYLINE HCL [Suspect]
     Route: 064
  2. CLONAZEPAM [Suspect]
     Dosage: UNK UKN, UNK
     Route: 064
  3. LORAZEPAM [Suspect]
     Dosage: UNK UKN, UNK
     Route: 064
  4. MIRTAZAPINE [Suspect]
     Dosage: UNK UKN, UNK
     Route: 064
  5. PAROXETINE HCL [Suspect]
     Dosage: 20 MG, TID
     Route: 064
  6. PHOSPHORATE [Suspect]
     Route: 064
  7. OMEPRAZOLE [Suspect]
  8. DIAZEPAM [Suspect]
     Route: 064
  9. PROCYCLIDINE HYDROCHLORIDE 2MG TAB [Suspect]
     Indication: OCULOGYRIC CRISIS
     Dosage: UNK UKN, UNK
     Route: 064
     Dates: start: 19950101
  10. TRAMADOL HCL [Suspect]
     Dosage: UNK UKN, UNK
     Route: 064
  11. CODEINE SULFATE [Suspect]
     Route: 064
  12. DOMPERIDONE [Suspect]
     Route: 064
  13. QUETIAPINE [Suspect]
     Dosage: UNK UKN, UNK
     Route: 064

REACTIONS (2)
  - PREMATURE BABY [None]
  - MATERNAL EXPOSURE DURING PREGNANCY [None]
